FAERS Safety Report 8616210-3 (Version None)
Quarter: 2012Q3

REPORT INFORMATION
  Report Type: 
  Country: None (occurrence: None)
  Receive Date: 20120823
  Receipt Date: 20120815
  Transmission Date: 20120928
  Serious: Yes (Hospitalization, Other)
  Sender: FDA-Public Use
  Company Number: US-ROCHE-765378

PATIENT
  Sex: Male
  Weight: 54.48 kg

DRUGS (2)
  1. ACCUTANE [Suspect]
     Route: 065
     Dates: start: 19990101, end: 20000101
  2. ACCUTANE [Suspect]
     Indication: ACNE
     Route: 065
     Dates: start: 19940914, end: 19950208

REACTIONS (7)
  - COLITIS ULCERATIVE [None]
  - EMOTIONAL DISTRESS [None]
  - INTESTINAL OBSTRUCTION [None]
  - DRY SKIN [None]
  - CROHN'S DISEASE [None]
  - CHAPPED LIPS [None]
  - INFLAMMATORY BOWEL DISEASE [None]
